FAERS Safety Report 8337109 (Version 3)
Quarter: 2020Q2

REPORT INFORMATION
  Report Type: Spontaneous
  Country: DK (occurrence: DK)
  Receive Date: 20120113
  Receipt Date: 20200401
  Transmission Date: 20200714
  Serious: Yes (Death, Hospitalization, Other)
  Sender: FDA-Public Use
  Company Number: DK-ROCHE-1029704

PATIENT
  Age: 81 Year
  Sex: Male

DRUGS (4)
  1. RANIBIZUMAB. [Suspect]
     Active Substance: RANIBIZUMAB
     Indication: AGE-RELATED MACULAR DEGENERATION
     Route: 042
  2. PREDNISONE. [Suspect]
     Active Substance: PREDNISONE
     Indication: SCLERITIS
     Route: 048
  3. METHYLPREDNISOLONE. [Concomitant]
     Active Substance: METHYLPREDNISOLONE
     Indication: SCLERITIS
     Route: 042
  4. RITUXIMAB. [Suspect]
     Active Substance: RITUXIMAB
     Indication: SCLERITIS
     Dosage: 1000 MG, Q2WK
     Route: 041

REACTIONS (11)
  - Pneumocystis jirovecii pneumonia [Fatal]
  - Anuria [Fatal]
  - Respiratory failure [Fatal]
  - Pneumothorax [Fatal]
  - Coma [Fatal]
  - Paranasal sinus mucosal hypertrophy [Unknown]
  - Hypoxia [Unknown]
  - Scleritis [Fatal]
  - Cerebral disorder [Fatal]
  - Myocardial infarction [Fatal]
  - Pyrexia [Unknown]
